FAERS Safety Report 11645150 (Version 1)
Quarter: 2015Q4

REPORT INFORMATION
  Report Type: Spontaneous
  Country: US (occurrence: US)
  Receive Date: 20151020
  Receipt Date: 20151020
  Transmission Date: 20160304
  Serious: No
  Sender: FDA-Public Use
  Company Number: US-GE HEALTHCARE MEDICAL DIAGNOSTICS-OMPQ-PR-1509S-1749

PATIENT
  Age: 46 Year
  Sex: Female
  Weight: 66.28 kg

DRUGS (13)
  1. GENTAMICIN. [Concomitant]
     Active Substance: GENTAMICIN
  2. OMNIPAQUE [Suspect]
     Active Substance: IOHEXOL
     Indication: DIAGNOSTIC PROCEDURE
  3. HYDROXYCHLOROQUINE [Concomitant]
     Active Substance: HYDROXYCHLOROQUINE
  4. METOPROLOL [Concomitant]
     Active Substance: METOPROLOL
  5. DOCUSATE [Concomitant]
     Active Substance: DOCUSATE
  6. TELMISARTAN. [Concomitant]
     Active Substance: TELMISARTAN
  7. LANTHANUM CARBONATE. [Concomitant]
     Active Substance: LANTHANUM CARBONATE
  8. CALCITRIOL. [Concomitant]
     Active Substance: CALCITRIOL
  9. OMNIPAQUE [Suspect]
     Active Substance: IOHEXOL
     Indication: ANEURYSM
     Route: 042
     Dates: start: 20150824
  10. CINACALCET [Concomitant]
     Active Substance: CINACALCET
  11. POTASSIUM CHLORIDE. [Concomitant]
     Active Substance: POTASSIUM CHLORIDE
  12. BISACODYL. [Concomitant]
     Active Substance: BISACODYL
  13. AMLODIPINE [Concomitant]
     Active Substance: AMLODIPINE BESYLATE

REACTIONS (1)
  - Vomiting [Unknown]

NARRATIVE: CASE EVENT DATE: 20150824
